FAERS Safety Report 5839831-X (Version None)
Quarter: 2008Q3

REPORT INFORMATION
  Report Type: 
  Country: None (occurrence: None)
  Receive Date: 20080807
  Receipt Date: 20080729
  Transmission Date: 20090109
  Serious: Yes (Death)
  Sender: FDA-Public Use
  Company Number: 2008AL008979

PATIENT
  Age: 69 Year
  Sex: Male
  Weight: 99.7913 kg

DRUGS (1)
  1. DIGOXIN [Suspect]
     Indication: HEART RATE IRREGULAR

REACTIONS (1)
  - DEATH [None]
